FAERS Safety Report 9846739 (Version 1)
Quarter: 2013Q4

REPORT INFORMATION
  Report Type: Spontaneous
  Country: US (occurrence: None)
  Receive Date: 20131219
  Receipt Date: 20131219
  Transmission Date: 20140711
  Serious: Yes (Hospitalization, Other)
  Sender: FDA-Public Use
  Company Number: 163-20785-13034029

PATIENT
  Age: 42 Year
  Sex: Male

DRUGS (9)
  1. THALOMID [Suspect]
     Indication: PLASMA CELL MYELOMA
     Dosage: 400 MG,  1 IN 1 D, PO
     Route: 048
     Dates: start: 201010, end: 2010
  2. DEXAMETHASONE (DEXAMETHASONE) [Suspect]
     Indication: PLASMA CELL MYELOMA
     Dates: start: 201010
  3. CISPLATIN (CISPLATIN) [Suspect]
     Indication: PLASMA CELL MYELOMA
     Dosage: UNK
     Dates: start: 20120830
  4. DOXORUBICIN [Suspect]
     Indication: PLASMA CELL MYELOMA
     Dosage: UNK
     Dates: start: 20120830
  5. CYCLOPHOSPHAMIDE (CYCLOPHOSPHAMIDE) [Suspect]
     Indication: PLASMA CELL MYELOMA
     Dosage: UNK  , THERAPY DATES 30/AUG/2012 - UNKNOWN
     Dates: start: 20120830
  6. ETOPOSIDE [Suspect]
     Indication: PLASMA CELL MYELOMA
     Dosage: UNK 30AUG2012 - UNKNOWN THERAPY DATES
     Dates: start: 20120830
  7. CYTOXAN [Concomitant]
  8. LOMOTIL (LOMOTIL) (TABLETS) [Concomitant]
  9. ZOFRAN (ONDANSETRON HYDROCHLORIDE) (TABLETS) [Concomitant]

REACTIONS (4)
  - Renal failure acute [None]
  - Febrile neutropenia [None]
  - Pancytopenia [None]
  - Plasma cell myeloma [None]
